FAERS Safety Report 15154440 (Version 3)
Quarter: 2018Q3

REPORT INFORMATION
  Report Type: Report from Study
  Country: US (occurrence: US)
  Receive Date: 20180717
  Receipt Date: 20180803
  Transmission Date: 20181010
  Serious: Yes (Hospitalization)
  Sender: FDA-Public Use
  Company Number: US-GILEAD-2018-0350035

PATIENT
  Age: 65 Year
  Sex: Female

DRUGS (5)
  1. UPTRAVI [Concomitant]
     Active Substance: SELEXIPAG
     Dosage: 600 UG, BID
  2. ADCIRCA [Concomitant]
     Active Substance: TADALAFIL
  3. AMBRISENTAN [Suspect]
     Active Substance: AMBRISENTAN
     Indication: PRODUCT USED FOR UNKNOWN INDICATION
     Dosage: 10 MG, QD
     Route: 065
     Dates: start: 20161212
  4. UPTRAVI [Concomitant]
     Active Substance: SELEXIPAG
     Dosage: 1000 UG, BID
  5. OPSUMIT [Concomitant]
     Active Substance: MACITENTAN

REACTIONS (3)
  - Dyspnoea [Unknown]
  - Oedema [Unknown]
  - Epistaxis [Unknown]
